FAERS Safety Report 12965046 (Version 3)
Quarter: 2016Q4

REPORT INFORMATION
  Report Type: Spontaneous
  Country: JP (occurrence: JP)
  Receive Date: 20161122
  Receipt Date: 20161213
  Transmission Date: 20170207
  Serious: Yes (Other)
  Sender: FDA-Public Use
  Company Number: JP-CELGENEUS-JPN-2016114761

PATIENT
  Age: 82 Year
  Sex: Male

DRUGS (2)
  1. VIDAZA [Suspect]
     Active Substance: AZACITIDINE
     Indication: PRODUCT USED FOR UNKNOWN INDICATION
     Dosage: 75MG/M2
     Route: 058
  2. VIDAZA [Suspect]
     Active Substance: AZACITIDINE
     Dosage: 75MG/M2
     Route: 058

REACTIONS (1)
  - Erythema multiforme [Not Recovered/Not Resolved]
